FAERS Safety Report 21076015 (Version 1)
Quarter: 2022Q3

REPORT INFORMATION
  Report Type: Spontaneous
  Country: US (occurrence: None)
  Receive Date: 20220713
  Receipt Date: 20220713
  Transmission Date: 20221026
  Serious: Yes (Hospitalization)
  Sender: FDA-Public Use
  Company Number: None

PATIENT
  Age: 70 Year
  Sex: Female
  Weight: 72.12 kg

DRUGS (18)
  1. EVEROLIMUS [Suspect]
     Active Substance: EVEROLIMUS
     Indication: Lung neoplasm malignant
     Dosage: FREQUENCY : DAILY;?
     Route: 048
     Dates: start: 202206
  2. ALBUTEROL [Concomitant]
     Active Substance: ALBUTEROL
  3. ATORVASTATIN [Concomitant]
     Active Substance: ATORVASTATIN
  4. AZITHROMYCIN [Concomitant]
     Active Substance: AZITHROMYCIN
  5. BREZTRI [Concomitant]
     Active Substance: BUDESONIDE\FORMOTEROL\GLYCOPYRROLATE
  6. CARDIZEM [Concomitant]
     Active Substance: DILTIAZEM HYDROCHLORIDE
  7. CYANOCOBALAMIN [Concomitant]
     Active Substance: CYANOCOBALAMIN
  8. DICYCLOMINE [Concomitant]
     Active Substance: DICYCLOMINE HYDROCHLORIDE
  9. ERGOCALCIFEROL [Concomitant]
     Active Substance: ERGOCALCIFEROL
  10. EVEROLIMUS [Concomitant]
     Active Substance: EVEROLIMUS
  11. FERROUS SULFATE [Concomitant]
     Active Substance: FERROUS SULFATE
  12. FOLIC ACID [Concomitant]
     Active Substance: FOLIC ACID
  13. LASIX [Concomitant]
     Active Substance: FUROSEMIDE
  14. LOSARTAN [Concomitant]
     Active Substance: LOSARTAN
  15. METOPROLOL [Concomitant]
     Active Substance: METOPROLOL
  16. NORCO [Concomitant]
     Active Substance: ACETAMINOPHEN\HYDROCODONE BITARTRATE
  17. PANTOPRAZOLE [Concomitant]
     Active Substance: PANTOPRAZOLE
  18. VRAYLAR [Concomitant]
     Active Substance: CARIPRAZINE

REACTIONS (2)
  - Chest pain [None]
  - Fatigue [None]
